FAERS Safety Report 10927598 (Version 1)
Quarter: 2015Q1

REPORT INFORMATION
  Report Type: Spontaneous
  Country: CN (occurrence: CN)
  Receive Date: 20150318
  Receipt Date: 20150318
  Transmission Date: 20150721
  Serious: Yes (Hospitalization)
  Sender: FDA-Public Use
  Company Number: CN-BAXTER-2015BAX013894

PATIENT
  Age: 45 Year
  Sex: Female

DRUGS (2)
  1. 20% MANNITOL INJECTION [Suspect]
     Active Substance: MANNITOL
     Indication: NERVOUS SYSTEM DISORDER
     Route: 041
     Dates: start: 20140818, end: 20140818
  2. 20% MANNITOL INJECTION [Suspect]
     Active Substance: MANNITOL
     Indication: OFF LABEL USE

REACTIONS (7)
  - Swelling [Recovering/Resolving]
  - Rash erythematous [Recovering/Resolving]
  - Rash pruritic [Recovering/Resolving]
  - Urine output decreased [Recovering/Resolving]
  - Flushing [Recovering/Resolving]
  - Blood pressure decreased [Recovering/Resolving]
  - Tachypnoea [Recovering/Resolving]

NARRATIVE: CASE EVENT DATE: 20140818
